FAERS Safety Report 7488319-1 (Version None)
Quarter: 2011Q2

REPORT INFORMATION
  Report Type: 
  Country: None (occurrence: None)
  Receive Date: 20110518
  Receipt Date: 20110515
  Transmission Date: 20111010
  Serious: Yes (Other)
  Sender: FDA-Public Use
  Company Number: DE-SHIRE-SPV1-2011-00789

PATIENT
  Age: 18 Year
  Sex: Male
  Weight: 60 kg

DRUGS (2)
  1. METHYLPHENIDATE HCL [Suspect]
     Indication: PRODUCT USED FOR UNKNOWN INDICATION
     Dosage: 300 MG, ONE DOSE
     Route: 048
     Dates: start: 20110501
  2. CANNABIS SATIVA [Suspect]
     Indication: PRODUCT USED FOR UNKNOWN INDICATION
     Dosage: 1 DF, ONE DOSE
     Route: 055
     Dates: start: 20110501

REACTIONS (2)
  - SUICIDE ATTEMPT [None]
  - INTENTIONAL OVERDOSE [None]
